FAERS Safety Report 7739394-8 (Version None)
Quarter: 2011Q3

REPORT INFORMATION
  Report Type: 
  Country: None (occurrence: None)
  Receive Date: 20110909
  Receipt Date: 20110831
  Transmission Date: 20111222
  Serious: Yes (Hospitalization, Other)
  Sender: FDA-Public Use
  Company Number: US-ASTELLAS-2011US005490

PATIENT
  Age: 74 Year

DRUGS (1)
  1. TARCEVA [Suspect]
     Indication: OFF LABEL USE
     Dosage: UNK
     Route: 048
     Dates: end: 20110501

REACTIONS (4)
  - HOSPITALISATION [None]
  - RESPIRATORY FAILURE [None]
  - ACUTE RESPIRATORY DISTRESS SYNDROME [None]
  - OFF LABEL USE [None]
